FAERS Safety Report 9866191 (Version 1)
Quarter: 2014Q1

REPORT INFORMATION
  Report Type: Spontaneous
  Country: US (occurrence: US)
  Receive Date: 20140203
  Receipt Date: 20140203
  Transmission Date: 20141002
  Serious: No
  Sender: FDA-Public Use
  Company Number: US-ALLERGAN-1316590US

PATIENT
  Age: 80 Year
  Sex: Female

DRUGS (4)
  1. RESTASIS [Suspect]
     Indication: DRY EYE
     Dosage: 2 GTT, BID
     Route: 047
     Dates: start: 20131006, end: 20131018
  2. HTN MEDICATION NOS [Concomitant]
     Indication: HYPERTENSION
     Dosage: UNK
  3. CHOLESTEROL MEDICATION NOS [Concomitant]
     Indication: BLOOD CHOLESTEROL INCREASED
     Dosage: UNK
  4. REFRESH EYE DROPS PRESERVATIVE FREE NOS [Concomitant]
     Indication: DRY EYE
     Dosage: UNK
     Dates: end: 20131006

REACTIONS (6)
  - Conjunctivitis viral [Recovering/Resolving]
  - Ocular discomfort [Recovering/Resolving]
  - Scleral hyperaemia [Recovering/Resolving]
  - Eye pruritus [Recovering/Resolving]
  - Eye irritation [Recovering/Resolving]
  - Eye discharge [Not Recovered/Not Resolved]
